FAERS Safety Report 16708133 (Version 3)
Quarter: 2019Q4

REPORT INFORMATION
  Report Type: Spontaneous
  Country: JP (occurrence: JP)
  Receive Date: 20190815
  Receipt Date: 20191011
  Transmission Date: 20200122
  Serious: Yes (Hospitalization)
  Sender: FDA-Public Use
  Company Number: JP-TAKEDA-2019TJP012881

PATIENT
  Age: 54 Year
  Sex: Male
  Weight: 57 kg

DRUGS (10)
  1. PROGRAF [Suspect]
     Active Substance: TACROLIMUS
     Dosage: 4 MILLIGRAM, BID
     Route: 048
     Dates: start: 20190511, end: 20190524
  2. PROGRAF [Suspect]
     Active Substance: TACROLIMUS
     Dosage: 4 MILLIGRAM, BID
     Route: 048
     Dates: start: 20190528, end: 20190604
  3. ENTYVIO [Suspect]
     Active Substance: VEDOLIZUMAB
     Indication: COLITIS ULCERATIVE
     Dosage: 300 MILLIGRAM
     Route: 041
     Dates: start: 20190320, end: 20190615
  4. LEUKERIN [Concomitant]
     Active Substance: MERCAPTOPURINE
     Dosage: 45 MILLIGRAM, QD
     Route: 048
     Dates: start: 20190619, end: 20190803
  5. PROGRAF [Suspect]
     Active Substance: TACROLIMUS
     Dosage: 5 MILLIGRAM, BID
     Route: 048
     Dates: end: 20190510
  6. PROGRAF [Suspect]
     Active Substance: TACROLIMUS
     Dosage: 3 MILLIGRAM, BID
     Route: 048
     Dates: start: 20190605, end: 20190803
  7. LEUKERIN [Concomitant]
     Active Substance: MERCAPTOPURINE
     Indication: COLITIS ULCERATIVE
     Dosage: 30 MILLIGRAM, QD
     Route: 048
     Dates: start: 20190311, end: 20190618
  8. PROGRAF [Suspect]
     Active Substance: TACROLIMUS
     Indication: COLITIS ULCERATIVE
     Dosage: 8 MILLIGRAM, BID
     Route: 048
     Dates: start: 20190225
  9. AZATHIOPRINE. [Concomitant]
     Active Substance: AZATHIOPRINE
     Dosage: UNK
     Route: 065
     Dates: start: 20190320
  10. PROGRAF [Suspect]
     Active Substance: TACROLIMUS
     Dosage: 3 MILLIGRAM, BID
     Route: 048
     Dates: start: 20190525, end: 20190527

REACTIONS (6)
  - Drug ineffective [Not Recovered/Not Resolved]
  - Overdose [Unknown]
  - Renal impairment [Recovering/Resolving]
  - Hypoalbuminaemia [Recovered/Resolved]
  - Inappropriate schedule of product administration [Unknown]
  - Oedema peripheral [Not Recovered/Not Resolved]

NARRATIVE: CASE EVENT DATE: 20190330
